FAERS Safety Report 7602692-2 (Version None)
Quarter: 2011Q3

REPORT INFORMATION
  Report Type: 
  Country: None (occurrence: None)
  Receive Date: 20110712
  Receipt Date: 20110707
  Transmission Date: 20111222
  Serious: Yes (Other)
  Sender: FDA-Public Use
  Company Number: US-AMGEN-USASP2011034797

PATIENT
  Age: 73 Year
  Sex: Male

DRUGS (1)
  1. NPLATE [Suspect]
     Indication: IDIOPATHIC THROMBOCYTOPENIC PURPURA
     Dates: start: 20110323

REACTIONS (3)
  - CARDIAC STRESS TEST ABNORMAL [None]
  - ANGINA PECTORIS [None]
  - PLATELET COUNT DECREASED [None]
